FAERS Safety Report 10233111 (Version 2)
Quarter: 2014Q2

REPORT INFORMATION
  Report Type: Spontaneous
  Country: ES (occurrence: ES)
  Receive Date: 20140612
  Receipt Date: 20140619
  Transmission Date: 20141212
  Serious: Yes (Other)
  Sender: FDA-Public Use
  Company Number: ES-009507513-1406ESP003155

PATIENT
  Age: 31 Year
  Sex: Female
  Weight: 78.9 kg

DRUGS (26)
  1. VICTRELIS [Suspect]
     Indication: HEPATITIS C
     Dosage: 2400 DAILY DOSE, 800 MG/EVERY 8 HOURS
     Route: 048
     Dates: start: 20140217
  2. RIBAVIRIN [Suspect]
     Indication: HEPATITIS C
     Dosage: 200 MG, QD
     Route: 048
     Dates: start: 20140117, end: 20140519
  3. RIBAVIRIN [Suspect]
     Dosage: QOD
     Route: 048
     Dates: start: 20140519
  4. PEGASYS [Suspect]
     Indication: HEPATITIS C
     Dosage: 135 MICROGRAM, QW
     Route: 058
     Dates: start: 20140117
  5. SODIUM BICARBONATE [Concomitant]
     Dosage: 500 MG, TOTAL DAILY DOSE: 1-1-1
  6. CALCIUM ACETATE (ROYEN) [Concomitant]
     Dosage: TOTAL DAILY DOSE 1-2-2
  7. OMEPRAZOLE [Concomitant]
     Dosage: 20 MG; TOTAL DAILY DOSE 1-0-0
  8. EUTIROX [Concomitant]
     Dosage: 135 MICROGRAM, TOTAL DAILY DO1-0-0
  9. ALLOPURINOL [Concomitant]
     Dosage: TOTAL DAILY DOSE:0-1/2-0
  10. ATORVASTATIN [Concomitant]
     Dosage: TOTAL DAILY DOSE(0-0-1)
  11. ZEMPLAR [Concomitant]
     Dosage: 1 MICROGRAM/48 HR
  12. CABERGOLINE [Concomitant]
     Dosage: 0.5 L, MONDAYS AND THURSDAYS
  13. AMLODIPINE [Concomitant]
     Dosage: 5 MG, DAILY DOSE OF 1-0-1
  14. LISINOPRIL [Concomitant]
     Dosage: 20 MG, TOTAL DAILY DOSE OF 1-0-1
  15. MAGNESIUM (UNSPECIFIED) [Concomitant]
     Dosage: 1-1-1
  16. ARANESP (DARBEPOETIN ALFA) [Concomitant]
     Dosage: 40 MICROGRAM, QW
     Dates: start: 20140612
  17. ARANESP (DARBEPOETIN ALFA) [Concomitant]
     Dosage: 80 MICROGRAM, QW
     Dates: start: 20130902
  18. ARANESP (DARBEPOETIN ALFA) [Concomitant]
     Dosage: 150 MICROGRAM, QW
     Dates: start: 20140521
  19. ARANESP (DARBEPOETIN ALFA) [Concomitant]
     Dosage: 300 MICROGRAM, QW
     Dates: start: 20140602
  20. ATARAX (HYDROXYZINE HYDROCHLORIDE) [Concomitant]
  21. BALZAK (BALZAK PLUS) [Concomitant]
  22. DOSTINEX [Concomitant]
  23. POTASION (POTASSIUM CHLORIDE) [Concomitant]
  24. SAFLUTAN 15 MCG/ML COLIRIO EN SOLUCIN, ENVASES UNIDOSIS [Concomitant]
  25. ZEMPLAR [Concomitant]
  26. ZOFRAN [Concomitant]

REACTIONS (13)
  - Transfusion [Unknown]
  - Depression [Unknown]
  - Nausea [Unknown]
  - Vomiting [Unknown]
  - Headache [Unknown]
  - Pyrexia [Unknown]
  - Rhinorrhoea [Unknown]
  - Fatigue [Unknown]
  - Pain [Unknown]
  - Cough [Unknown]
  - Oropharyngeal pain [Unknown]
  - Haemoglobin decreased [Unknown]
  - Hepatitis C [Unknown]
